FAERS Safety Report 5155704-2 (Version None)
Quarter: 2006Q4

REPORT INFORMATION
  Report Type: 
  Country: None (occurrence: None)
  Receive Date: 20061121
  Receipt Date: 20061114
  Transmission Date: 20070319
  Serious: Yes (Other)
  Sender: FDA-Public Use
  Company Number: CA-MERCK-0611CAN00120

PATIENT
  Sex: Female

DRUGS (1)
  1. INVANZ [Suspect]
     Route: 041

REACTIONS (1)
  - BLOOD GLUCOSE ABNORMAL [None]
